FAERS Safety Report 25643703 (Version 1)
Quarter: 2025Q3

REPORT INFORMATION
  Report Type: Spontaneous
  Country: US (occurrence: None)
  Receive Date: 20250802
  Receipt Date: 20250802
  Transmission Date: 20251020
  Serious: Yes (Disabling, Other)
  Sender: FDA-CTU
  Company Number: None

PATIENT
  Age: 77 Year
  Sex: Female
  Weight: 60.3 kg

DRUGS (10)
  1. DUPIXENT [Suspect]
     Active Substance: DUPILUMAB
     Indication: Asthma
     Dates: start: 20250501, end: 20250531
  2. NUCALA [Suspect]
     Active Substance: MEPOLIZUMAB
  3. Escitalopram 20mg, per day [Concomitant]
  4. Amlodipine 5mg, per day [Concomitant]
  5. Pantoprazole Sod 40mg per day [Concomitant]
  6. Losartan Potassium 25mg, per day [Concomitant]
  7. Prednisone 10mg per day, qd [Concomitant]
  8. Tylenol 500mg twice daily [Concomitant]
  9. Alprazalom 0.5mgas needed up to 2/per day [Concomitant]
  10. MSIR 30mg as needed up to 4/day. [Concomitant]

REACTIONS (14)
  - Abdominal discomfort [None]
  - Urinary incontinence [None]
  - Anal incontinence [None]
  - Sciatica [None]
  - Rash [None]
  - Acne [None]
  - Groin pain [None]
  - Gait disturbance [None]
  - Fatigue [None]
  - Decreased appetite [None]
  - Influenza like illness [None]
  - Impaired driving ability [None]
  - Loss of personal independence in daily activities [None]
  - Fatigue [None]

NARRATIVE: CASE EVENT DATE: 20250501
